FAERS Safety Report 13874847 (Version 3)
Quarter: 2025Q1

REPORT INFORMATION
  Report Type: Spontaneous
  Country: US (occurrence: US)
  Receive Date: 20170816
  Receipt Date: 20250217
  Transmission Date: 20250408
  Serious: Yes (Other)
  Sender: ROCHE
  Company Number: US-ROCHE-1384251

PATIENT
  Age: 91 Year
  Sex: Female

DRUGS (5)
  1. RANIBIZUMAB [Suspect]
     Active Substance: RANIBIZUMAB
     Indication: Neovascular age-related macular degeneration
     Route: 050
  2. POVIDONE-IODINE [Concomitant]
     Active Substance: POVIDONE-IODINE
     Route: 065
  3. DIFLUPREDNATE [Concomitant]
     Active Substance: DIFLUPREDNATE
     Route: 065
  4. BROMFENAC [Concomitant]
     Active Substance: BROMFENAC
     Route: 065
  5. LOTEPREDNOL ETABONATE [Concomitant]
     Active Substance: LOTEPREDNOL ETABONATE
     Route: 065

REACTIONS (1)
  - Bacterial endophthalmitis [Unknown]
